FAERS Safety Report 6311652-3 (Version None)
Quarter: 2009Q3

REPORT INFORMATION
  Report Type: 
  Country: None (occurrence: None)
  Receive Date: 20090817
  Receipt Date: 20090817
  Transmission Date: 20100115
  Serious: Yes (Other)
  Sender: FDA-Public Use
  Company Number: D0062275A

PATIENT
  Age: 96 Year
  Sex: Female

DRUGS (1)
  1. ARIXTRA [Suspect]
     Route: 065

REACTIONS (2)
  - HAEMORRHAGIC DIATHESIS [None]
  - PROTHROMBIN TIME PROLONGED [None]
